FAERS Safety Report 10488384 (Version 4)
Quarter: 2015Q2

REPORT INFORMATION
  Report Type: Spontaneous
  Country: US (occurrence: None)
  Receive Date: 20140923
  Receipt Date: 20150414
  Transmission Date: 20150821
  Serious: Yes (Death, Life-Threatening, Hospitalization, Disabling, Other)
  Sender: FDA-Public Use
  Company Number: 003-235

PATIENT
  Age: 51 Year
  Sex: Male

DRUGS (1)
  1. CROFAB [Suspect]
     Active Substance: CROTALIDAE POLYVALENT IMMUNE FAB (OVINE)
     Indication: SNAKE BITE
     Dosage: 14 VIALS TOTAL
     Dates: start: 20040704, end: 200407

REACTIONS (7)
  - Platelet count decreased [None]
  - Abasia [None]
  - Multiple sclerosis relapse [None]
  - Dizziness [None]
  - Disease progression [None]
  - Balance disorder [None]
  - Pneumonia aspiration [None]

NARRATIVE: CASE EVENT DATE: 2004
